FAERS Safety Report 6905717-2 (Version None)
Quarter: 2010Q3

REPORT INFORMATION
  Report Type: 
  Country: None (occurrence: None)
  Receive Date: 20100708
  Receipt Date: 20090602
  Transmission Date: 20110219
  Serious: Yes (Other)
  Sender: FDA-Public Use
  Company Number: 2009205217

PATIENT
  Age: 64 Year
  Sex: Female
  Weight: 72.6 kg

DRUGS (13)
  1. CHANTIX [Suspect]
     Indication: SMOKING CESSATION THERAPY
     Dosage: 1 MG, 2X/DAY, ORAL
     Route: 048
     Dates: start: 20080301
  2. PREDNISONE [Suspect]
  3. PROZAC [Concomitant]
  4. PERCOCET [Concomitant]
  5. OXYCONTIN (OXYCODONR HYDROCHLORIDE) [Concomitant]
  6. ZETIA [Concomitant]
  7. LOMOTIL [Concomitant]
  8. VALTREX [Concomitant]
  9. WELCHOL (COLESEVELAM HYDROCHLOLRIDE) [Concomitant]
  10. MONTELUKAST SODIUM [Concomitant]
  11. FUROSEMIDE [Concomitant]
  12. TIZANIDINE HCL [Concomitant]
  13. IMIPRAMINE (IMPRAMINE) [Concomitant]

REACTIONS (5)
  - HALLUCINATION [None]
  - HYPERSENSITIVITY [None]
  - NAUSEA [None]
  - NIGHTMARE [None]
  - VOMITING [None]
